FAERS Safety Report 8616538 (Version 2)
Quarter: 2013Q4

REPORT INFORMATION
  Report Type: Spontaneous
  Country: US (occurrence: US)
  Receive Date: 20120615
  Receipt Date: 20131011
  Transmission Date: 20140711
  Serious: Yes (Hospitalization)
  Sender: FDA-Public Use
  Company Number: US-ASTRAZENECA-2012SE36320

PATIENT
  Age: 12427 Day
  Sex: Female
  Weight: 66.2 kg

DRUGS (16)
  1. NEXIUM [Suspect]
     Indication: GASTROOESOPHAGEAL REFLUX DISEASE
     Dosage: ONLY ONE TIME
     Route: 048
  2. PRILOSEC [Suspect]
     Route: 048
  3. PRILOSEC [Suspect]
     Route: 048
  4. PRILOSEC OTC [Suspect]
     Route: 048
  5. TUMS OTC [Concomitant]
  6. ROLAIDS OTC [Concomitant]
  7. DEPAKOTE [Concomitant]
  8. AMITRIPTYLINE [Concomitant]
  9. VITAMIN D [Concomitant]
     Dosage: 50000 IU
  10. CANDESARTAN [Concomitant]
  11. ACETAMINOPHEN [Concomitant]
  12. AMBIEN [Concomitant]
  13. CALCIUM [Concomitant]
  14. VITAMIN E [Concomitant]
  15. STRATTERA [Concomitant]
  16. RITALIN [Concomitant]

REACTIONS (7)
  - Back disorder [Unknown]
  - Uterine disorder [Unknown]
  - Osteoporosis [Unknown]
  - Multiple fractures [Unknown]
  - Upper limb fracture [Unknown]
  - Osteopenia [Unknown]
  - Fall [Unknown]
